FAERS Safety Report 8989007 (Version 1)
Quarter: 2012Q4

REPORT INFORMATION
  Report Type: 
  Country: GB (occurrence: GB)
  Receive Date: 20121228
  Receipt Date: 20121228
  Transmission Date: 20130627
  Serious: Yes (Other)
  Sender: FDA-Public Use
  Company Number: PHFR2010GB05673

PATIENT
  Age: 48 Year
  Sex: Female

DRUGS (4)
  1. CLOZARIL [Suspect]
     Indication: SCHIZOPHRENIA, PARANOID TYPE
     Dosage: UNK UKN, UNK
     Route: 048
     Dates: start: 20061031
  2. CLOZARIL [Suspect]
     Dosage: 400 mg, daily
     Route: 048
  3. QUETIAPINE [Concomitant]
     Indication: SCHIZOPHRENIA, PARANOID TYPE
     Dosage: 200 mg, UNK
  4. CITALOPRAM [Concomitant]
     Indication: DEPRESSION
     Dosage: 40 mg, UNK

REACTIONS (4)
  - Haemorrhage [Unknown]
  - Anaemia [Recovering/Resolving]
  - Haemoglobin decreased [Not Recovered/Not Resolved]
  - Differential white blood cell count abnormal [Unknown]
